FAERS Safety Report 8523030-7 (Version None)
Quarter: 2012Q3

REPORT INFORMATION
  Report Type: 
  Country: None (occurrence: None)
  Receive Date: 20120720
  Receipt Date: 20120711
  Transmission Date: 20120928
  Serious: Yes (Hospitalization)
  Sender: FDA-Public Use
  Company Number: US-ROCHE-1074618

PATIENT
  Weight: 106.3 kg

DRUGS (17)
  1. VEMURAFENIB [Interacting]
     Dates: start: 20120620
  2. ACETAMINOPHEN [Interacting]
     Dates: start: 20120527, end: 20120527
  3. ACETAMINOPHEN [Interacting]
     Dates: start: 20120531, end: 20120601
  4. SULFAMETTHOXAZOLE AND TRIMETHOPRIM [Interacting]
     Indication: PRODUCT USED FOR UNKNOWN INDICATION
     Dates: start: 20120523, end: 20120527
  5. ACETAMINOPHEN [Interacting]
     Dates: start: 20120522, end: 20120522
  6. VEMURAFENIB [Interacting]
     Indication: METASTATIC MALIGNANT MELANOMA
     Dosage: LAST DOSE PRIOR TO SAE: 27/MAY/2012
     Route: 048
     Dates: start: 20120416, end: 20120527
  7. ACETAMINOPHEN [Interacting]
     Dates: start: 20120528, end: 20120530
  8. METRONIDAZOLE [Interacting]
     Indication: PRODUCT USED FOR UNKNOWN INDICATION
     Dates: start: 20120527, end: 20120527
  9. DOXYCYCLINE [Interacting]
     Indication: PRODUCT USED FOR UNKNOWN INDICATION
     Dates: start: 20120527, end: 20120527
  10. MORPHINE SULFATE [Concomitant]
     Dates: start: 20120601, end: 20120602
  11. ACETAMINOPHEN [Interacting]
     Dates: start: 20120518, end: 20120518
  12. ACETAMINOPHEN [Interacting]
     Dates: start: 20120519, end: 20120521
  13. DIPHENHYDRAMINE HCL [Suspect]
     Indication: PRODUCT USED FOR UNKNOWN INDICATION
     Dates: start: 20120426
  14. ACETAMINOPHEN [Interacting]
     Indication: PRODUCT USED FOR UNKNOWN INDICATION
     Route: 065
     Dates: start: 20120516, end: 20120517
  15. ACETAMINOPHEN [Interacting]
     Dates: start: 20120523, end: 20120526
  16. CEFTRIAXONE SODIUM [Interacting]
     Indication: PRODUCT USED FOR UNKNOWN INDICATION
     Dates: start: 20120527, end: 20120527
  17. OMEPRAZOLE [Suspect]
     Indication: PRODUCT USED FOR UNKNOWN INDICATION
     Dates: start: 20120426

REACTIONS (4)
  - LIVER FUNCTION TEST ABNORMAL [None]
  - JAUNDICE [None]
  - PYREXIA [None]
  - CHOLESTASIS [None]
